FAERS Safety Report 11395416 (Version 1)
Quarter: 2015Q3

REPORT INFORMATION
  Report Type: Spontaneous
  Country: US (occurrence: US)
  Receive Date: 20150819
  Receipt Date: 20150819
  Transmission Date: 20151125
  Serious: No
  Sender: FDA-Public Use
  Company Number: US-LPDUSPRD-20150447

PATIENT
  Age: 16 Year

DRUGS (1)
  1. INJECTAFER [Suspect]
     Active Substance: FERRIC CARBOXYMALTOSE
     Dosage: 15 MG/KG (MAXIMUM DOSE OF 750M
     Route: 040

REACTIONS (1)
  - Abdominal pain [Recovered/Resolved]
